FAERS Safety Report 19504207 (Version 1)
Quarter: 2021Q3

REPORT INFORMATION
  Report Type: Spontaneous
  Country: PT (occurrence: PT)
  Receive Date: 20210707
  Receipt Date: 20210707
  Transmission Date: 20211014
  Serious: Yes (Other)
  Sender: FDA-Public Use
  Company Number: PT-PFIZER INC-2021831779

PATIENT
  Age: 50 Year
  Sex: Female

DRUGS (5)
  1. DILTIAZEM. [Interacting]
     Active Substance: DILTIAZEM
     Dosage: UNK
  2. CETUXIMAB. [Concomitant]
     Active Substance: CETUXIMAB
     Indication: COLORECTAL CANCER METASTATIC
     Dosage: UNK
  3. BRAFTOVI [Suspect]
     Active Substance: ENCORAFENIB
     Indication: COLORECTAL CANCER METASTATIC
     Dosage: 300 MG, QD (1/DAY)
     Dates: start: 20210212
  4. BRAFTOVI [Interacting]
     Active Substance: ENCORAFENIB
     Dosage: 300 MG, UNK
  5. BRAFTOVI [Interacting]
     Active Substance: ENCORAFENIB
     Dosage: 150 MG

REACTIONS (4)
  - Ventricular tachycardia [Recovered/Resolved]
  - Electrocardiogram QT prolonged [Recovered/Resolved]
  - Drug interaction [Recovered/Resolved]
  - Nausea [Recovered/Resolved]

NARRATIVE: CASE EVENT DATE: 202102
